FAERS Safety Report 24111548 (Version 1)
Quarter: 2024Q3

REPORT INFORMATION
  Report Type: Spontaneous
  Country: US (occurrence: US)
  Receive Date: 20240718
  Receipt Date: 20240718
  Transmission Date: 20241016
  Serious: No
  Sender: BRISTOL MYERS SQUIBB
  Company Number: US-BRISTOL-MYERS SQUIBB COMPANY-2024-114385

PATIENT
  Age: 72 Year
  Sex: Male
  Weight: 82.55 kg

DRUGS (1)
  1. REVLIMID [Suspect]
     Active Substance: LENALIDOMIDE
     Indication: Plasma cell myeloma
     Dosage: 25MG CAPSULE DAILY FOR 14 DAYS THEN 7 DAYS OFF
     Route: 048

REACTIONS (5)
  - Appetite disorder [Recovering/Resolving]
  - Taste disorder [Recovering/Resolving]
  - Weight decreased [Recovering/Resolving]
  - Blood pressure decreased [Recovering/Resolving]
  - Off label use [Unknown]
